FAERS Safety Report 15894306 (Version 1)
Quarter: 2019Q1

REPORT INFORMATION
  Report Type: Spontaneous
  Country: US (occurrence: US)
  Receive Date: 20190109
  Receipt Date: 20190109
  Transmission Date: 20190417
  Serious: Yes (Other)
  Sender: FDA-Public Use
  Company Number: None

PATIENT
  Sex: Male

DRUGS (1)
  1. OLD SPICE AP-DO + BODY SPRAY [Suspect]
     Active Substance: ALUMINUM ZIRCONIUM TRICHLOROHYDREX GLY
     Route: 061
     Dates: end: 2003

REACTIONS (3)
  - Hypersensitivity [None]
  - Anaphylactic shock [None]
  - Chemical burn [None]

NARRATIVE: CASE EVENT DATE: 2003
